FAERS Safety Report 5472712-2 (Version None)
Quarter: 2007Q4

REPORT INFORMATION
  Report Type: 
  Country: None (occurrence: None)
  Receive Date: 20071001
  Receipt Date: 20060925
  Transmission Date: 20080405
  Serious: No
  Sender: FDA-Public Use
  Company Number: US-ASTRAZENECA-2006UW18713

PATIENT
  Age: 71 Year
  Sex: Female
  Weight: 84.4 kg

DRUGS (3)
  1. ARIMIDEX [Suspect]
     Indication: BREAST CANCER
     Route: 048
     Dates: start: 20050101
  2. PREVACID [Concomitant]
  3. ATENOLOL [Concomitant]

REACTIONS (6)
  - DEPRESSION [None]
  - HOT FLUSH [None]
  - INCREASED APPETITE [None]
  - MOOD SWINGS [None]
  - NAUSEA [None]
  - WEIGHT INCREASED [None]
